FAERS Safety Report 20670750 (Version 9)
Quarter: 2022Q3

REPORT INFORMATION
  Report Type: Report from Study
  Country: GB (occurrence: None)
  Receive Date: 20220404
  Receipt Date: 20220713
  Transmission Date: 20221027
  Serious: Yes (Hospitalization)
  Sender: FDA-Public Use
  Company Number: GB-ROCHE-3063265

PATIENT
  Age: 31 Year
  Sex: Female
  Weight: 63.8 kg

DRUGS (8)
  1. ATEZOLIZUMAB [Suspect]
     Active Substance: ATEZOLIZUMAB
     Indication: HER2 positive breast cancer
     Dosage: DOSE LAST STUDY DRUG ADMIN PRIOR AE IS?DOSE LAST STUDY DRUG ADMIN PRIOR SAE ?START DATE OF MOST RECE
     Route: 041
     Dates: start: 20220309
  2. ADO-TRASTUZUMAB EMTANSINE [Suspect]
     Active Substance: ADO-TRASTUZUMAB EMTANSINE
     Indication: HER2 positive breast cancer
     Dosage: DOSE LAST STUDY DRUG ADMIN PRIOR AE IS 210 MG/KG ?DOSE LAST STUDY DRUG ADMIN PRIOR SAE IS 210 MG/KG
     Route: 042
     Dates: start: 20220309
  3. ZOPICLONE [Concomitant]
     Active Substance: ZOPICLONE
     Indication: Insomnia
     Dates: start: 20220323, end: 20220324
  4. PIPERACILLIN SODIUM\TAZOBACTAM SODIUM [Concomitant]
     Active Substance: PIPERACILLIN SODIUM\TAZOBACTAM SODIUM
     Indication: Infection
     Dates: start: 20220323, end: 20220324
  5. AMOXICILLIN\CLAVULANATE POTASSIUM [Concomitant]
     Active Substance: AMOXICILLIN\CLAVULANATE POTASSIUM
     Indication: Infection
     Dates: start: 20220325, end: 20220330
  6. ACETAMINOPHEN [Concomitant]
     Active Substance: ACETAMINOPHEN
     Indication: Infection
     Dates: start: 20220323, end: 20220325
  7. CYCLIZINE [Concomitant]
     Active Substance: CYCLIZINE
     Indication: Nausea
     Dates: start: 20220324, end: 20220330
  8. ONDANSETRON [Concomitant]
     Active Substance: ONDANSETRON
     Indication: Nausea
     Dates: start: 20220324, end: 20220325

REACTIONS (1)
  - Infection [Recovered/Resolved]

NARRATIVE: CASE EVENT DATE: 20220322
